FAERS Safety Report 4588835-6 (Version None)
Quarter: 2005Q1

REPORT INFORMATION
  Report Type: 
  Country: None (occurrence: None)
  Receive Date: 20050216
  Receipt Date: 20050127
  Transmission Date: 20050727
  Serious: Yes (Hospitalization)
  Sender: FDA-Public Use
  Company Number: ATO-05-0024

PATIENT
  Age: 52 Year
  Sex: Male
  Weight: 87.5442 kg

DRUGS (7)
  1. TRISENOX [Suspect]
     Indication: MULTIPLE MYELOMA
     Dosage: 22 MG (QD), IVI
     Dates: start: 20050118, end: 20050121
  2. MELPHALAN [Suspect]
     Indication: MULTIPLE MYELOMA
     Dosage: 9 MG (QD), IVI
     Dates: start: 20050118, end: 20050121
  3. ASCORBIC ACID [Suspect]
     Indication: MULTIPLE MYELOMA
     Dosage: QD
     Dates: start: 20050118, end: 20050121
  4. ALLOPURINOL [Concomitant]
  5. NORVASC [Concomitant]
  6. LOPRESSOR [Concomitant]
  7. VANCOMYCIN [Concomitant]

REACTIONS (2)
  - ATELECTASIS [None]
  - PANCREATITIS ACUTE [None]
